FAERS Safety Report 5585793-2 (Version None)
Quarter: 2007Q4

REPORT INFORMATION
  Report Type: 
  Country: None (occurrence: None)
  Receive Date: 20071203
  Receipt Date: 20060831
  Transmission Date: 20080405
  Serious: Yes (Other)
  Sender: FDA-Public Use
  Company Number: 2007022275

PATIENT

DRUGS (2)
  1. ZYVOX [Suspect]
  2. LEVAQUIN [Concomitant]

REACTIONS (1)
  - PLATELET COUNT DECREASED [None]
